FAERS Safety Report 22605343 (Version 1)
Quarter: 2023Q2

REPORT INFORMATION
  Report Type: Spontaneous
  Country: US (occurrence: US)
  Receive Date: 20230615
  Receipt Date: 20230615
  Transmission Date: 20230722
  Serious: Yes (Other)
  Sender: FDA-Public Use
  Company Number: US-PFIZER INC-202300221833

PATIENT
  Age: 74 Year
  Sex: Female
  Weight: 75.8 kg

DRUGS (13)
  1. IBRANCE [Suspect]
     Active Substance: PALBOCICLIB
     Indication: Breast cancer metastatic
     Dosage: 100 MG, DAILY
     Route: 048
     Dates: end: 20220113
  2. IBRANCE [Suspect]
     Active Substance: PALBOCICLIB
     Dosage: 100 MG
     Dates: start: 20220120, end: 20220316
  3. IBRANCE [Suspect]
     Active Substance: PALBOCICLIB
     Dosage: UNK (CYCLE 6 DAY 1 IBRANCE)
     Dates: start: 20220402
  4. IBRANCE [Suspect]
     Active Substance: PALBOCICLIB
     Dosage: UNK (CYCLE 7 DAY 1 IBRANCE)
     Dates: start: 20220502
  5. IBRANCE [Suspect]
     Active Substance: PALBOCICLIB
     Dosage: UNK (CYCLE 8 DAY 1 IBRANCE)
     Dates: start: 20220529, end: 20220627
  6. IBRANCE [Suspect]
     Active Substance: PALBOCICLIB
     Dosage: UNK (CYCLE 10 DAY 1 IBRANCE)
     Dates: start: 20220731, end: 20220801
  7. IBRANCE [Suspect]
     Active Substance: PALBOCICLIB
     Dosage: UNK (CYCLE 10 DAY 1 IBRANCE)
     Dates: start: 20220815
  8. IBRANCE [Suspect]
     Active Substance: PALBOCICLIB
     Dosage: UNK (CYCLE 11 DAY 1 IBRANCE)
     Dates: start: 20220913
  9. IBRANCE [Suspect]
     Active Substance: PALBOCICLIB
     Dosage: UNK (CYCLE 12 DAY 1 IBRANCE)
     Dates: start: 20221010
  10. IBRANCE [Suspect]
     Active Substance: PALBOCICLIB
     Indication: Breast cancer metastatic
     Dosage: 100 MG, DAILY 1 TAB BY MOUTH DAILY FOR 21 DAYS, THEN OFF FOR 7 DAYS.
     Route: 048
  11. ZOMETA [Concomitant]
     Active Substance: ZOLEDRONIC ACID
     Dosage: UNK
     Dates: start: 20220731
  12. ZOMETA [Concomitant]
     Active Substance: ZOLEDRONIC ACID
     Dosage: UNK
     Dates: start: 20220913
  13. ZOMETA [Concomitant]
     Active Substance: ZOLEDRONIC ACID
     Dosage: UNK
     Dates: start: 20221010

REACTIONS (1)
  - Neutropenia [Unknown]

NARRATIVE: CASE EVENT DATE: 20220316
